FAERS Safety Report 7596014-3 (Version None)
Quarter: 2011Q3

REPORT INFORMATION
  Report Type: 
  Country: None (occurrence: None)
  Receive Date: 20110707
  Receipt Date: 20110629
  Transmission Date: 20111222
  Serious: Yes (Hospitalization, Other)
  Sender: FDA-Public Use
  Company Number: PHHY2009CA30906

PATIENT
  Sex: Female

DRUGS (8)
  1. SANDOSTATIN LAR [Suspect]
     Dosage: 30 MG, TIW
     Route: 030
  2. XELODA [Concomitant]
  3. SANDOSTATIN LAR [Suspect]
     Indication: CARCINOID TUMOUR
     Dosage: 30 MG EVERY 4 WEEKS
     Route: 030
     Dates: start: 20090526
  4. SANDOSTATIN LAR [Suspect]
     Dosage: 30 MG, EVERY 3 WEEKS
     Route: 030
  5. SANDOSTATIN [Suspect]
     Indication: CARCINOID TUMOUR OF THE GASTROINTESTINAL TRACT
     Dosage: 100 UG, TID
     Route: 058
  6. CAPECITABINE [Concomitant]
  7. SANDOSTATIN LAR [Suspect]
     Dosage: 30 MG, QMO
     Route: 030
  8. SANDOSTATIN LAR [Suspect]
     Dosage: 30 MG, QMO
     Route: 030

REACTIONS (24)
  - NAUSEA [None]
  - DIZZINESS [None]
  - ASTHENIA [None]
  - MALAISE [None]
  - FALL [None]
  - HERPES ZOSTER [None]
  - PAIN IN EXTREMITY [None]
  - FLUSHING [None]
  - FATIGUE [None]
  - ABDOMINAL PAIN UPPER [None]
  - HUMERUS FRACTURE [None]
  - ARTHRALGIA [None]
  - VISION BLURRED [None]
  - BLOOD PRESSURE INCREASED [None]
  - PAIN [None]
  - ABDOMINAL PAIN [None]
  - ABDOMINAL DISTENSION [None]
  - FLATULENCE [None]
  - ABDOMINAL ADHESIONS [None]
  - FLANK PAIN [None]
  - DIARRHOEA [None]
  - BACK PAIN [None]
  - NEURALGIA [None]
  - OCULAR HYPERAEMIA [None]
